FAERS Safety Report 13702575 (Version 1)
Quarter: 2017Q2

REPORT INFORMATION
  Report Type: Spontaneous
  Country: US (occurrence: US)
  Receive Date: 20170629
  Receipt Date: 20170629
  Transmission Date: 20170830
  Serious: No
  Sender: FDA-Public Use
  Company Number: US-SHIRE-US201713646

PATIENT
  Sex: Female
  Weight: 67.12 kg

DRUGS (2)
  1. LIALDA [Suspect]
     Active Substance: MESALAMINE
     Indication: OFF LABEL USE
  2. LIALDA [Suspect]
     Active Substance: MESALAMINE
     Indication: CROHN^S DISEASE
     Dosage: 2.4 G, 2X/DAY:BID
     Route: 048
     Dates: start: 2017

REACTIONS (10)
  - Emotional disorder [Unknown]
  - Job dissatisfaction [Unknown]
  - Drug dose omission [Recovered/Resolved]
  - Off label use [Not Recovered/Not Resolved]
  - Condition aggravated [Unknown]
  - Diarrhoea [Unknown]
  - Swelling [Unknown]
  - Intentional product misuse [Not Recovered/Not Resolved]
  - Stress [Unknown]
  - Discomfort [Unknown]

NARRATIVE: CASE EVENT DATE: 2017
